FAERS Safety Report 9479009 (Version 1)
Quarter: 2013Q3

REPORT INFORMATION
  Report Type: Spontaneous
  Country: US (occurrence: US)
  Receive Date: 20130827
  Receipt Date: 20130827
  Transmission Date: 20140515
  Serious: No
  Sender: FDA-Public Use
  Company Number: US-BAYER-2013-101833

PATIENT
  Age: 47 Year
  Sex: Male

DRUGS (3)
  1. BETASERON [Suspect]
     Dosage: 0.3 MG, QOD
  2. GABAPENTIN [Concomitant]
     Dosage: 100 MG, UNK
  3. LORTAB [Concomitant]
     Dosage: UNK

REACTIONS (1)
  - Influenza like illness [Unknown]
